FAERS Safety Report 21291059 (Version 4)
Quarter: 2022Q4

REPORT INFORMATION
  Report Type: Spontaneous
  Country: US (occurrence: US)
  Receive Date: 20220903
  Receipt Date: 20221104
  Transmission Date: 20230112
  Serious: No
  Sender: FDA-Public Use
  Company Number: US-VIIV HEALTHCARE LIMITED-US2022AMR123075

PATIENT
  Age: 64 Year
  Sex: Male

DRUGS (11)
  1. RILPIVIRINE [Suspect]
     Active Substance: RILPIVIRINE
     Indication: HIV infection
     Route: 065
     Dates: start: 20211101
  2. RILPIVIRINE [Suspect]
     Active Substance: RILPIVIRINE
     Dosage: UNK, Z, AMOUNT EVERY TWO MONTHS
     Route: 065
     Dates: start: 202205
  3. RILPIVIRINE [Suspect]
     Active Substance: RILPIVIRINE
     Dosage: UNK, Z, AMOUNT EVERY TWO MONTHS
     Route: 065
     Dates: start: 202207
  4. RILPIVIRINE [Suspect]
     Active Substance: RILPIVIRINE
     Dosage: UNK, Z, AMOUNT EVERY TWO MONTHS
     Route: 065
     Dates: start: 202209
  5. CABOTEGRAVIR [Suspect]
     Active Substance: CABOTEGRAVIR
     Indication: HIV infection
     Route: 065
     Dates: start: 20211101
  6. CABOTEGRAVIR [Suspect]
     Active Substance: CABOTEGRAVIR
     Dosage: UNK UNK, Z, EVERY TWO MONTHS
     Route: 065
     Dates: start: 202207
  7. CABOTEGRAVIR [Suspect]
     Active Substance: CABOTEGRAVIR
     Dosage: UNK UNK, Z, EVERY TWO MONTHS
     Route: 065
     Dates: start: 202209
  8. AZT [Suspect]
     Active Substance: ZIDOVUDINE
     Indication: HIV infection
     Route: 065
     Dates: start: 1993
  9. VOCABRIA [CABOTEGRAVIR SODIUM] [Concomitant]
     Indication: HIV infection
     Dosage: UNK
     Route: 048
     Dates: start: 202111
  10. EDURANT [Concomitant]
     Active Substance: RILPIVIRINE HYDROCHLORIDE
     Indication: HIV infection
     Dosage: UNK
     Route: 048
     Dates: start: 202111
  11. DIDANOSINE [Concomitant]
     Active Substance: DIDANOSINE
     Indication: HIV infection
     Dosage: UNK

REACTIONS (8)
  - Ill-defined disorder [Recovered/Resolved]
  - Injection site pain [Recovered/Resolved]
  - Gastrooesophageal reflux disease [Unknown]
  - Post procedural complication [Unknown]
  - Malaise [Unknown]
  - Catheter removal [Recovered/Resolved]
  - Sinusitis [Not Recovered/Not Resolved]
  - Oropharyngeal pain [Not Recovered/Not Resolved]

NARRATIVE: CASE EVENT DATE: 19930101
